FAERS Safety Report 9830792 (Version 1)
Quarter: 2014Q1

REPORT INFORMATION
  Report Type: Report from Study
  Country: DE (occurrence: TR)
  Receive Date: 20140120
  Receipt Date: 20140120
  Transmission Date: 20141002
  Serious: Yes (Death)
  Sender: FDA-Public Use
  Company Number: DE-ACTELION-A-US2014-93855

PATIENT
  Age: 5 Month
  Sex: Male

DRUGS (1)
  1. VENTAVIS [Suspect]
     Indication: PULMONARY HYPERTENSION
     Dosage: UNK, 6X1
     Route: 055
     Dates: start: 20131122, end: 20140106

REACTIONS (2)
  - Pulmonary hypertension [Fatal]
  - Off label use [Unknown]
